FAERS Safety Report 9787267 (Version 2)
Quarter: 2013Q4

REPORT INFORMATION
  Report Type: Report from Study
  Country: US (occurrence: US)
  Receive Date: 20131230
  Receipt Date: 20131230
  Transmission Date: 20140711
  Serious: Yes (Other)
  Sender: FDA-Public Use
  Company Number: US-ROCHE-1323314

PATIENT
  Age: 42 Year
  Sex: Female
  Weight: 87.62 kg

DRUGS (4)
  1. XOLAIR [Suspect]
     Indication: PRODUCT USED FOR UNKNOWN INDICATION
     Route: 065
  2. IMMUNOTHERAPY (POLLEN,DUST,MOLD) [Concomitant]
     Indication: HOUSE DUST ALLERGY
     Dosage: 1:1000 DILUTION
     Route: 058
     Dates: start: 20131017, end: 20131114
  3. IMMUNOTHERAPY (POLLEN,DUST,MOLD) [Concomitant]
     Indication: SEASONAL ALLERGY
  4. IMMUNOTHERAPY (POLLEN,DUST,MOLD) [Concomitant]
     Indication: MYCOTIC ALLERGY

REACTIONS (2)
  - Asthma [Recovered/Resolved]
  - Malaise [Unknown]
